FAERS Safety Report 15564427 (Version 2)
Quarter: 2019Q1

REPORT INFORMATION
  Report Type: Spontaneous
  Country: US (occurrence: US)
  Receive Date: 20181030
  Receipt Date: 20190204
  Transmission Date: 20190417
  Serious: Yes (Other)
  Sender: FDA-Public Use
  Company Number: US-HORIZON-KRY-0350-2018

PATIENT
  Age: 74 Year
  Sex: Female

DRUGS (1)
  1. KRYSTEXXA [Suspect]
     Active Substance: PEGLOTICASE
     Indication: GOUT
     Dosage: 8 MG INFUSION EVERY 2 WEEKS
     Dates: start: 20180828

REACTIONS (6)
  - Eye swelling [Recovering/Resolving]
  - Erythema [Unknown]
  - Swelling face [Recovering/Resolving]
  - Pharyngeal oedema [Recovering/Resolving]
  - Wheezing [Recovering/Resolving]
  - Throat tightness [Recovering/Resolving]

NARRATIVE: CASE EVENT DATE: 20181024
